FAERS Safety Report 8047669-0 (Version None)
Quarter: 2012Q1

REPORT INFORMATION
  Report Type: 
  Country: None (occurrence: None)
  Receive Date: 20120116
  Receipt Date: 20120109
  Transmission Date: 20120608
  Serious: Yes (Hospitalization, Other)
  Sender: FDA-Public Use
  Company Number: US-ABBOTT-12P-163-0891117-00

PATIENT
  Sex: Female
  Weight: 55.842 kg

DRUGS (8)
  1. METHOTREXATE [Concomitant]
     Indication: RHEUMATOID ARTHRITIS
  2. VITAMIN C [Concomitant]
     Indication: VITAMIN SUPPLEMENTATION
  3. ALENDRONATE SODIUM [Concomitant]
     Indication: BONE DENSITY ABNORMAL
  4. HUMIRA [Suspect]
     Indication: RHEUMATOID ARTHRITIS
     Dosage: 1 IN 10D, @ TIMES PROLONGED TO 1 IN 12D
     Dates: start: 20020101, end: 20111229
  5. HUMIRA [Suspect]
  6. HUMIRA [Suspect]
     Dates: end: 20111229
  7. FOLIC ACID [Concomitant]
     Indication: VITAMIN SUPPLEMENTATION
  8. ALOE VERA [Concomitant]
     Indication: MEDICAL DIET

REACTIONS (8)
  - OEDEMA PERIPHERAL [None]
  - PERIARTHRITIS [None]
  - JOINT RANGE OF MOTION DECREASED [None]
  - CARTILAGE INJURY [None]
  - MUSCULOSKELETAL PAIN [None]
  - MOBILITY DECREASED [None]
  - BREAST CANCER [None]
  - ARTHRALGIA [None]
